FAERS Safety Report 12207070 (Version 1)
Quarter: 2016Q1

REPORT INFORMATION
  Report Type: Spontaneous
  Country: US (occurrence: US)
  Receive Date: 20160324
  Receipt Date: 20160324
  Transmission Date: 20160526
  Serious: Yes (Other)
  Sender: FDA-Public Use
  Company Number: US-JNJFOC-20160300054

PATIENT
  Sex: Female

DRUGS (3)
  1. AZATHIOPRINE. [Concomitant]
     Active Substance: AZATHIOPRINE
     Route: 065
  2. SIMPONI [Suspect]
     Active Substance: GOLIMUMAB
     Indication: COLITIS ULCERATIVE
     Route: 058
  3. LIALDA [Concomitant]
     Active Substance: MESALAMINE
     Route: 065

REACTIONS (5)
  - Paraesthesia [Unknown]
  - Injection site paraesthesia [Unknown]
  - Injection site hypoaesthesia [Unknown]
  - Colitis ulcerative [Unknown]
  - Hypoaesthesia [Unknown]
